FAERS Safety Report 22654476 (Version 1)
Quarter: 2023Q2

REPORT INFORMATION
  Report Type: Spontaneous
  Country: US (occurrence: US)
  Receive Date: 20230629
  Receipt Date: 20230629
  Transmission Date: 20230721
  Serious: Yes (Death)
  Sender: FDA-Public Use
  Company Number: US-Emergent Biosolution-23000267

PATIENT
  Age: 28 Year
  Sex: Male

DRUGS (1)
  1. NALOXONE HYDROCHLORIDE [Suspect]
     Active Substance: NALOXONE HYDROCHLORIDE
     Indication: Overdose
     Dosage: UNK
     Route: 065
     Dates: start: 20230614, end: 20230614

REACTIONS (1)
  - Death [Fatal]

NARRATIVE: CASE EVENT DATE: 20230614
